FAERS Safety Report 9895730 (Version 2)
Quarter: 2014Q1

REPORT INFORMATION
  Report Type: Spontaneous
  Country: US (occurrence: US)
  Receive Date: 20140213
  Receipt Date: 20140213
  Transmission Date: 20141002
  Serious: No
  Sender: FDA-Public Use
  Company Number: US-BRISTOL-MYERS SQUIBB COMPANY-18978726

PATIENT
  Sex: Female

DRUGS (3)
  1. ABATACEPT SUBQ INJECTION 125MG/ML [Suspect]
     Indication: RHEUMATOID ARTHRITIS
     Dosage: ORENCIA IV 250MG TWICE, A TOTAL OF 500MG ON 12SEP2012?3A77125(LOT PROVIDED  FOR THE LAST 2 IV INJ )
     Route: 058
     Dates: start: 201207
  2. ORENCIA FOR INJ 250 MG/VIAL [Suspect]
     Indication: RHEUMATOID ARTHRITIS
     Dosage: ON 12-SEP-2012: 250MG TWICE
     Route: 042
     Dates: start: 20120912
  3. METHOTREXATE [Concomitant]

REACTIONS (1)
  - Drug ineffective [Unknown]
